FAERS Safety Report 7148878-5 (Version None)
Quarter: 2010Q4

REPORT INFORMATION
  Report Type: 
  Country: None (occurrence: None)
  Receive Date: 20101209
  Receipt Date: 20101201
  Transmission Date: 20110411
  Serious: Yes (Other)
  Sender: FDA-Public Use
  Company Number: JP-CELGENEUS-087-21880-10092748

PATIENT
  Sex: Female
  Weight: 44.8 kg

DRUGS (9)
  1. REVLIMID [Suspect]
     Indication: MULTIPLE MYELOMA
     Route: 048
     Dates: start: 20100819, end: 20100908
  2. REVLIMID [Suspect]
     Route: 048
     Dates: start: 20100917, end: 20101007
  3. REVLIMID [Suspect]
     Route: 048
     Dates: start: 20101014, end: 20101103
  4. DEXAMETHASONE [Concomitant]
     Route: 048
     Dates: start: 20100819, end: 20100822
  5. DEXAMETHASONE [Concomitant]
     Route: 048
     Dates: start: 20100827, end: 20100830
  6. DEXAMETHASONE [Concomitant]
     Route: 048
     Dates: start: 20100904, end: 20100907
  7. DEXAMETHASONE [Concomitant]
     Route: 048
     Dates: start: 20100917, end: 20100920
  8. DEXAMETHASONE [Concomitant]
     Route: 048
     Dates: start: 20101001, end: 20101004
  9. DEXAMETHASONE [Concomitant]
     Route: 048
     Dates: start: 20101014, end: 20101017

REACTIONS (8)
  - ANAEMIA [None]
  - CONSTIPATION [None]
  - HYPERCALCAEMIA [None]
  - NEUTROPENIA [None]
  - PNEUMONIA [None]
  - RENAL TUBULAR ACIDOSIS [None]
  - STOMATITIS [None]
  - THROMBOCYTOPENIA [None]
